FAERS Safety Report 16429200 (Version 3)
Quarter: 2019Q2

REPORT INFORMATION
  Report Type: Spontaneous
  Country: NL (occurrence: NL)
  Receive Date: 20190614
  Receipt Date: 20190614
  Transmission Date: 20190711
  Serious: Yes (Other)
  Sender: FDA-Public Use
  Company Number: NL-TEVA-2019-NL-1060870

PATIENT
  Sex: Female
  Weight: 58 kg

DRUGS (2)
  1. DESMOPRESSINE [Suspect]
     Active Substance: DESMOPRESSIN
     Indication: DIABETES INSIPIDUS
     Route: 065
  2. HYDROXYCLOROQUINE [Interacting]
     Active Substance: HYDROXYCHLOROQUINE
     Indication: SJOGREN^S SYNDROME
     Dosage: 2X A TABLET OF 200 MG TWICE A DAY
     Dates: start: 20180718

REACTIONS (4)
  - Therapeutic product effect decreased [Recovered/Resolved]
  - Condition aggravated [Recovered/Resolved]
  - Drug interaction [Recovered/Resolved]
  - Diabetes insipidus [Recovered/Resolved]
